FAERS Safety Report 21044317 (Version 1)
Quarter: 2022Q3

REPORT INFORMATION
  Report Type: Spontaneous
  Country: US (occurrence: None)
  Receive Date: 20220705
  Receipt Date: 20220705
  Transmission Date: 20221027
  Serious: Yes (Disabling)
  Sender: FDA-Public Use
  Company Number: None

PATIENT
  Sex: Female

DRUGS (10)
  1. RYBELSUS [Suspect]
     Active Substance: SEMAGLUTIDE
     Indication: Diabetes mellitus
     Dosage: FREQUENCY : DAILY;?
     Route: 048
  2. SUCRALFATE [Concomitant]
     Active Substance: SUCRALFATE
  3. HYDROCHLOROTHIAZIDE [Concomitant]
     Active Substance: HYDROCHLOROTHIAZIDE
  4. TROSPIUM [Concomitant]
     Active Substance: TROSPIUM
  5. SERTRALINE [Concomitant]
     Active Substance: SERTRALINE HYDROCHLORIDE
  6. LOSARTAN POTASSIUM [Concomitant]
     Active Substance: LOSARTAN POTASSIUM
  7. CETIRIZINE [Concomitant]
     Active Substance: CETIRIZINE HYDROCHLORIDE
  8. METFORMIN [Concomitant]
     Active Substance: METFORMIN HYDROCHLORIDE
  9. MONTELUKAST [Concomitant]
     Active Substance: MONTELUKAST SODIUM
  10. CARVEDILOL [Concomitant]
     Active Substance: CARVEDILOL

REACTIONS (5)
  - Pain in extremity [None]
  - Gait disturbance [None]
  - Asthenia [None]
  - Muscular weakness [None]
  - Intentional product use issue [None]

NARRATIVE: CASE EVENT DATE: 20211101
